FAERS Safety Report 5285353-7 (Version None)
Quarter: 2007Q1

REPORT INFORMATION
  Report Type: 
  Country: None (occurrence: None)
  Receive Date: 20070328
  Receipt Date: 20070319
  Transmission Date: 20070707
  Serious: Yes (Other)
  Sender: FDA-Public Use
  Company Number: 2007SP005351

PATIENT
  Age: 24 Year
  Sex: Female

DRUGS (5)
  1. DESLORATADINE [Suspect]
     Indication: HYPERSENSITIVITY
     Dosage: 5 MG; QD; PO
     Route: 048
     Dates: start: 20070314, end: 20070319
  2. VIDORA (CON.) [Concomitant]
  3. NASACORT (CON.) [Concomitant]
  4. CITALOPRAM (CON.) [Concomitant]
  5. PRAXINOR /00276601/ (CON.) [Concomitant]

REACTIONS (2)
  - CONDITION AGGRAVATED [None]
  - EPILEPSY [None]
